FAERS Safety Report 18429991 (Version 1)
Quarter: 2020Q4

REPORT INFORMATION
  Report Type: Spontaneous
  Country: GB (occurrence: GB)
  Receive Date: 20201027
  Receipt Date: 20201027
  Transmission Date: 20210114
  Serious: Yes (Other)
  Sender: FDA-Public Use
  Company Number: GB-ACCORD-206270

PATIENT
  Age: 50 Year
  Sex: Female
  Weight: 71 kg

DRUGS (7)
  1. ATORVASTATIN/ATORVASTATIN CALCIUM [Suspect]
     Active Substance: ATORVASTATIN CALCIUM
     Indication: PRODUCT USED FOR UNKNOWN INDICATION
     Dates: start: 20200116
  2. IRON [Concomitant]
     Active Substance: IRON
     Dates: start: 20200228, end: 20200729
  3. BETAMETHASONE. [Concomitant]
     Active Substance: BETAMETHASONE
     Dosage: POTENCY: POTENT. APPLY ONCE OR TWICE A DAY.
     Dates: start: 20200714, end: 20200811
  4. PROPRANOLOL [Concomitant]
     Active Substance: PROPRANOLOL HYDROCHLORIDE
     Dates: start: 20161205, end: 20200729
  5. FENBID [Concomitant]
     Active Substance: IBUPROFEN
     Dosage: APPLY
     Dates: start: 20200506
  6. LANSOPRAZOLE. [Concomitant]
     Active Substance: LANSOPRAZOLE
     Dates: start: 20181107, end: 20201006
  7. LEVOTHYROXINE. [Concomitant]
     Active Substance: LEVOTHYROXINE
     Dates: start: 20170708

REACTIONS (3)
  - Headache [Recovered/Resolved]
  - Narrow anterior chamber angle [Recovered/Resolved]
  - Intraocular pressure increased [Recovered/Resolved]

NARRATIVE: CASE EVENT DATE: 20200203
